FAERS Safety Report 17675010 (Version 1)
Quarter: 2020Q2

REPORT INFORMATION
  Report Type: Report from Study
  Country: IN (occurrence: IN)
  Receive Date: 20200416
  Receipt Date: 20200416
  Transmission Date: 20200714
  Serious: Yes (Death)
  Sender: FDA-Public Use
  Company Number: IN-BRISTOL-MYERS SQUIBB COMPANY-BMS-2020-028840

PATIENT
  Age: 68 Year
  Sex: Female

DRUGS (1)
  1. NIVOLUMAB [Suspect]
     Active Substance: NIVOLUMAB
     Indication: NON-SMALL CELL LUNG CANCER
     Dosage: 220 MILLIGRAM, Q2WK
     Route: 042
     Dates: start: 20200214, end: 20200303

REACTIONS (3)
  - Asthenia [Unknown]
  - Dyspnoea [Unknown]
  - Adverse drug reaction [Fatal]

NARRATIVE: CASE EVENT DATE: 20200406
